FAERS Safety Report 9844778 (Version 1)
Quarter: 2014Q1

REPORT INFORMATION
  Report Type: Spontaneous
  Country: US (occurrence: US)
  Receive Date: 20140127
  Receipt Date: 20140127
  Transmission Date: 20141002
  Serious: Yes (Other)
  Sender: FDA-Public Use
  Company Number: US-ELI_LILLY_AND_COMPANY-US201401005786

PATIENT
  Sex: Female

DRUGS (3)
  1. HUMALOG LISPRO [Suspect]
     Indication: TYPE 2 DIABETES MELLITUS
     Dosage: 20 U, PRN
     Route: 065
  2. METFORMIN [Concomitant]
  3. LANTUS [Concomitant]

REACTIONS (2)
  - Leukaemia [Unknown]
  - Incorrect dose administered [Unknown]
